FAERS Safety Report 14919015 (Version 1)
Quarter: 2018Q2

REPORT INFORMATION
  Report Type: Spontaneous
  Country: FR (occurrence: FR)
  Receive Date: 20180521
  Receipt Date: 20180521
  Transmission Date: 20180711
  Serious: Yes (Other)
  Sender: FDA-Public Use
  Company Number: FR-MERCK KGAA-2048139

PATIENT
  Age: 43 Year
  Sex: Male

DRUGS (1)
  1. NOVOTHYROX [Suspect]
     Active Substance: LEVOTHYROXINE SODIUM
     Indication: POST PROCEDURAL HYPOTHYROIDISM
     Route: 048
     Dates: start: 20150201

REACTIONS (33)
  - Fatigue [Not Recovered/Not Resolved]
  - Loss of personal independence in daily activities [None]
  - Pruritus generalised [None]
  - Blood thyroid stimulating hormone decreased [Recovered/Resolved]
  - Weight increased [Not Recovered/Not Resolved]
  - Abdominal pain upper [None]
  - Avoidant personality disorder [None]
  - Capillary disorder [None]
  - Tri-iodothyronine free increased [Not Recovered/Not Resolved]
  - Arthralgia [None]
  - Depression [None]
  - Libido decreased [None]
  - Major depression [None]
  - Malaise [None]
  - Disturbance in attention [Not Recovered/Not Resolved]
  - Sleep disorder [Not Recovered/Not Resolved]
  - Nausea [None]
  - Headache [Not Recovered/Not Resolved]
  - Insomnia [None]
  - Asthenia [None]
  - Ageusia [None]
  - Thyroxine free increased [Not Recovered/Not Resolved]
  - Mood altered [None]
  - Visual acuity reduced [Not Recovered/Not Resolved]
  - Stress [Not Recovered/Not Resolved]
  - Decreased activity [None]
  - Decreased interest [Not Recovered/Not Resolved]
  - Dizziness [Not Recovered/Not Resolved]
  - Memory impairment [None]
  - Throat irritation [None]
  - Depressed mood [None]
  - Mood swings [None]
  - Muscle spasms [None]

NARRATIVE: CASE EVENT DATE: 20170117
